FAERS Safety Report 17770046 (Version 1)
Quarter: 2020Q2

REPORT INFORMATION
  Report Type: Spontaneous
  Country: DE (occurrence: DE)
  Receive Date: 20200512
  Receipt Date: 20200512
  Transmission Date: 20200714
  Serious: Yes (Other)
  Sender: FDA-Public Use
  Company Number: DE-PBT-000309

PATIENT
  Age: 58 Year

DRUGS (1)
  1. TACROLIMUS. [Suspect]
     Active Substance: TACROLIMUS
     Indication: PROPHYLAXIS AGAINST TRANSPLANT REJECTION
     Route: 065

REACTIONS (5)
  - Ureaplasma infection [Unknown]
  - Hyperammonaemia [Unknown]
  - Posterior reversible encephalopathy syndrome [Unknown]
  - Sepsis [Unknown]
  - Product use in unapproved indication [Unknown]
